FAERS Safety Report 7098625-0 (Version None)
Quarter: 2010Q4

REPORT INFORMATION
  Report Type: 
  Country: None (occurrence: None)
  Receive Date: 20101112
  Receipt Date: 20101105
  Transmission Date: 20110411
  Serious: Yes (Disabling, Other)
  Sender: FDA-Public Use
  Company Number: US-PFIZER INC-2010141904

PATIENT
  Sex: Female
  Weight: 90.703 kg

DRUGS (9)
  1. XANAX [Suspect]
     Indication: ANXIETY
     Dosage: 2 MG, 3X/DAY
     Dates: start: 19950101
  2. NEURONTIN [Suspect]
     Indication: PAIN
     Dosage: 750 MG, 3X/DAY
     Dates: start: 20070101
  3. SPIRIVA [Concomitant]
     Dosage: UNK
  4. NEXIUM [Concomitant]
     Dosage: UNK
  5. HYDROCODONE [Concomitant]
     Dosage: DAILY
  6. AMBIEN [Concomitant]
     Dosage: UNK, DAILY
  7. LEXAPRO [Concomitant]
     Dosage: 20 MG, UNK
  8. PREMARIN [Concomitant]
     Dosage: UNK, AS NEEDED
  9. METOPROLOL [Concomitant]
     Dosage: 750 MG, UNK

REACTIONS (2)
  - GLAUCOMA [None]
  - OSTEOMYELITIS [None]
